FAERS Safety Report 25985639 (Version 1)
Quarter: 2025Q4

REPORT INFORMATION
  Report Type: Spontaneous
  Country: EU (occurrence: EU)
  Receive Date: 20251031
  Receipt Date: 20251031
  Transmission Date: 20260118
  Serious: Yes (Other)
  Sender: TEVA
  Company Number: None

PATIENT
  Age: 61 Year
  Sex: Female

DRUGS (1)
  1. GABAPENTIN [Suspect]
     Active Substance: GABAPENTIN
     Indication: Product used for unknown indication
     Dosage: }-2400MG/DAY (600MG MORNING, 600MG MIDDAY, 1200MG EVENING)
     Route: 048
     Dates: start: 202410

REACTIONS (1)
  - Drug use disorder [Not Recovered/Not Resolved]
